FAERS Safety Report 12337029 (Version 5)
Quarter: 2016Q4

REPORT INFORMATION
  Report Type: Report from Study
  Country: FR (occurrence: FR)
  Receive Date: 20160505
  Receipt Date: 20161118
  Transmission Date: 20170207
  Serious: Yes (Hospitalization, Other)
  Sender: FDA-Public Use
  Company Number: PHHY2016FR056310

PATIENT
  Age: 47 Year
  Sex: Male
  Weight: 89 kg

DRUGS (15)
  1. CERTICAN [Suspect]
     Active Substance: EVEROLIMUS
     Dosage: 4 MG, QD
     Route: 048
     Dates: start: 20160607, end: 20160711
  2. PROGRAF [Concomitant]
     Active Substance: TACROLIMUS\TACROLIMUS ANHYDROUS
     Indication: IMMUNOSUPPRESSANT DRUG THERAPY
     Dosage: 4 MG, QD
     Route: 065
     Dates: start: 20160303, end: 20160406
  3. PROGRAF [Concomitant]
     Active Substance: TACROLIMUS\TACROLIMUS ANHYDROUS
     Dosage: 3 MG, QD
     Route: 048
     Dates: start: 20160407, end: 20160606
  4. CERTICAN [Suspect]
     Active Substance: EVEROLIMUS
     Indication: LIVER TRANSPLANT
     Dosage: 6 MG, QD
     Route: 048
     Dates: start: 20140124, end: 20141020
  5. CERTICAN [Suspect]
     Active Substance: EVEROLIMUS
     Dosage: UNK
     Route: 048
     Dates: start: 20160828, end: 20161024
  6. MYFORTIC [Suspect]
     Active Substance: MYCOPHENOLATE SODIUM
     Indication: IMMUNOSUPPRESSANT DRUG THERAPY
  7. CORTANCYL [Concomitant]
     Active Substance: PREDNISONE
     Indication: IMMUNOSUPPRESSANT DRUG THERAPY
     Dosage: 1 MG, QD
     Route: 065
     Dates: start: 20140417, end: 20140517
  8. CERTICAN [Suspect]
     Active Substance: EVEROLIMUS
     Dosage: 5 MG, QD
     Route: 048
     Dates: start: 20160712
  9. PROGRAF [Concomitant]
     Active Substance: TACROLIMUS\TACROLIMUS ANHYDROUS
     Dosage: 1.5 MG, QD
     Route: 065
     Dates: start: 20160607, end: 20160712
  10. MYFORTIC [Suspect]
     Active Substance: MYCOPHENOLATE SODIUM
     Indication: LIVER TRANSPLANT
     Dosage: 1440 MG, QD
     Route: 048
     Dates: start: 20131117
  11. CERTICAN [Suspect]
     Active Substance: EVEROLIMUS
     Dosage: 4 MG, QD
     Route: 048
     Dates: start: 20150604, end: 20160302
  12. CERTICAN [Suspect]
     Active Substance: EVEROLIMUS
     Dosage: 2 MG, QD
     Route: 048
     Dates: start: 20160303, end: 20160407
  13. CERTICAN [Suspect]
     Active Substance: EVEROLIMUS
     Dosage: 4 MG, QD
     Route: 048
     Dates: start: 20161025
  14. CERTICAN [Suspect]
     Active Substance: EVEROLIMUS
     Indication: IMMUNOSUPPRESSANT DRUG THERAPY
     Dosage: 8 MG, QD
     Route: 048
     Dates: start: 20141021, end: 20150218
  15. CERTICAN [Suspect]
     Active Substance: EVEROLIMUS
     Dosage: 7 MG, QD
     Route: 048
     Dates: start: 20150219, end: 20150603

REACTIONS (7)
  - Hypercholesterolaemia [Not Recovered/Not Resolved]
  - Wound abscess [Recovering/Resolving]
  - Purulent discharge [Recovered/Resolved]
  - Abscess [Recovered/Resolved]
  - Pyrexia [Recovered/Resolved]
  - Impaired healing [Recovered/Resolved]
  - Abdominal hernia [Recovering/Resolving]

NARRATIVE: CASE EVENT DATE: 20150716
